FAERS Safety Report 7101958-2 (Version None)
Quarter: 2010Q4

REPORT INFORMATION
  Report Type: 
  Country: None (occurrence: None)
  Receive Date: 20101115
  Receipt Date: 20101105
  Transmission Date: 20110411
  Serious: Yes (Other)
  Sender: FDA-Public Use
  Company Number: US-SANOFI-AVENTIS-2010SA068296

PATIENT
  Sex: Female

DRUGS (16)
  1. MULTAQ [Suspect]
     Indication: ATRIAL FIBRILLATION
     Route: 048
     Dates: start: 20100901, end: 20101101
  2. COUMADIN [Concomitant]
  3. DILTIAZEM [Concomitant]
  4. PRAVACHOL [Concomitant]
  5. LODINE [Concomitant]
  6. TRAZODONE [Concomitant]
  7. ISOSORBIDE DINITRATE [Concomitant]
  8. COLCHICINE [Concomitant]
  9. SINGULAIR [Concomitant]
  10. ADVAIR DISKUS 100/50 [Concomitant]
  11. SPIRIVA [Concomitant]
  12. FOLIC ACID [Concomitant]
  13. ALPHAGAN [Concomitant]
  14. ACTONEL [Concomitant]
  15. HYDRALAZINE [Concomitant]
  16. COZAAR [Concomitant]

REACTIONS (1)
  - VENTRICULAR TACHYCARDIA [None]
